FAERS Safety Report 19156578 (Version 1)
Quarter: 2021Q2

REPORT INFORMATION
  Report Type: Spontaneous
  Country: US (occurrence: US)
  Receive Date: 20210418
  Receipt Date: 20210418
  Transmission Date: 20210717
  Serious: Yes (Hospitalization, Other)
  Sender: FDA-Public Use
  Company Number: None

PATIENT
  Age: 25 Year
  Sex: Female
  Weight: 67.5 kg

DRUGS (9)
  1. OXYBUTYNIN 10MG [Suspect]
     Active Substance: OXYBUTYNIN
     Indication: CYSTITIS INTERSTITIAL
     Dates: start: 20210407, end: 20210414
  2. VITAMIN D [Concomitant]
     Active Substance: VITAMIN D NOS
  3. ZINC. [Concomitant]
     Active Substance: ZINC
  4. PREBIOTICS [Concomitant]
  5. NAC [Concomitant]
  6. MYDAYIS [Concomitant]
     Active Substance: AMPHETAMINE ASPARTATE\AMPHETAMINE SULFATE\DEXTROAMPHETAMINE SACCHARATE\DEXTROAMPHETAMINE SULFATE
  7. VALIUM [Concomitant]
     Active Substance: DIAZEPAM
  8. FISH OIL [Concomitant]
     Active Substance: FISH OIL
  9. YAZ [Concomitant]
     Active Substance: DROSPIRENONE\ETHINYL ESTRADIOL

REACTIONS (11)
  - Unevaluable event [None]
  - Flushing [None]
  - Dry mouth [None]
  - Arthralgia [None]
  - Dry eye [None]
  - Coordination abnormal [None]
  - Dry skin [None]
  - Dysuria [None]
  - Decreased appetite [None]
  - Myalgia [None]
  - Confusional state [None]

NARRATIVE: CASE EVENT DATE: 20210414
